FAERS Safety Report 7146338-9 (Version None)
Quarter: 2010Q4

REPORT INFORMATION
  Report Type: 
  Country: None (occurrence: None)
  Receive Date: 20101208
  Receipt Date: 20101203
  Transmission Date: 20110411
  Serious: Yes (Life-Threatening)
  Sender: FDA-Public Use
  Company Number: DE-TEVA-258365GER

PATIENT
  Age: 73 Year
  Sex: Female
  Weight: 70 kg

DRUGS (5)
  1. NITROFURANTOIN [Suspect]
     Indication: URINARY TRACT INFECTION
     Dosage: 100MG
     Route: 048
     Dates: start: 20050101, end: 20100101
  2. METFORMIN [Concomitant]
     Indication: TYPE 2 DIABETES MELLITUS
     Route: 048
     Dates: start: 20000101, end: 20100101
  3. GLIMEPIRIDE [Concomitant]
     Indication: TYPE 2 DIABETES MELLITUS
     Route: 048
     Dates: start: 20000101, end: 20100101
  4. ACETYLSALICYLIC ACID 100 [Concomitant]
     Indication: CORONARY ARTERY DISEASE
     Route: 048
     Dates: start: 19980101
  5. CANDESARTAN W/HYDROCHLOROTHIAZIDE (ATACAND PLUS 16/12,5 MG) [Concomitant]
     Dosage: CANDESARTAN CILEXETIL 16 MG + HYDROCHLOROTHIAZIDE 12,5 MG
     Route: 048
     Dates: start: 20000101

REACTIONS (2)
  - AUTOIMMUNE HEPATITIS [None]
  - PULMONARY FIBROSIS [None]
